FAERS Safety Report 11540892 (Version 2)
Quarter: 2015Q4

REPORT INFORMATION
  Report Type: Report from Study
  Country: US (occurrence: US)
  Receive Date: 20150923
  Receipt Date: 20151125
  Transmission Date: 20160304
  Serious: Yes (Hospitalization, Other)
  Sender: FDA-Public Use
  Company Number: US-AMGEN-USASL2015085646

PATIENT
  Age: 71 Year
  Sex: Male

DRUGS (2)
  1. WARFARIN [Suspect]
     Active Substance: WARFARIN
     Indication: THROMBOSIS
     Dosage: UNK
     Route: 065
  2. NPLATE [Suspect]
     Active Substance: ROMIPLOSTIM
     Indication: IMMUNE THROMBOCYTOPENIC PURPURA
     Dosage: UNK, Q3WK
     Route: 065
     Dates: start: 2009

REACTIONS (12)
  - Benign neoplasm [Unknown]
  - Muscle spasms [Unknown]
  - Prostate cancer [Recovered/Resolved]
  - Pruritus [Unknown]
  - Platelet count decreased [Unknown]
  - Headache [Unknown]
  - Petechiae [Unknown]
  - Terminal insomnia [Unknown]
  - Contusion [Unknown]
  - Weight increased [Unknown]
  - Fluid retention [Unknown]
  - Platelet count abnormal [Unknown]

NARRATIVE: CASE EVENT DATE: 2014
